FAERS Safety Report 25852817 (Version 1)
Quarter: 2025Q3

REPORT INFORMATION
  Report Type: Spontaneous
  Country: US (occurrence: US)
  Receive Date: 20250926
  Receipt Date: 20250926
  Transmission Date: 20251021
  Serious: No
  Sender: LAVIPHARM
  Company Number: US-Lavipharm SA-2185369

PATIENT
  Age: 70 Year
  Sex: Female

DRUGS (1)
  1. CLONIDINE TRANSDERMAL SYSTEM USP, 0.3 MG/DAY [Suspect]
     Active Substance: CLONIDINE
     Indication: Palpitations

REACTIONS (3)
  - Product prescribing issue [Unknown]
  - Product adhesion issue [Unknown]
  - Off label use [Unknown]
